FAERS Safety Report 11414573 (Version 1)
Quarter: 2015Q3

REPORT INFORMATION
  Report Type: Spontaneous
  Country: BR (occurrence: BR)
  Receive Date: 20150825
  Receipt Date: 20150825
  Transmission Date: 20151125
  Serious: Yes (Hospitalization, Other)
  Sender: FDA-Public Use
  Company Number: BR-AMGEN-BRASP2015086170

PATIENT
  Age: 71 Year
  Sex: Female
  Weight: 48 kg

DRUGS (1)
  1. ENBREL [Suspect]
     Active Substance: ETANERCEPT
     Indication: RHEUMATOID ARTHRITIS
     Dosage: 50 MG, 1X/WEEK
     Route: 058
     Dates: start: 2013

REACTIONS (4)
  - Cerebrovascular accident [Unknown]
  - Feeling abnormal [Unknown]
  - Infarction [Unknown]
  - Chest pain [Unknown]

NARRATIVE: CASE EVENT DATE: 2015
